FAERS Safety Report 12304409 (Version 1)
Quarter: 2016Q2

REPORT INFORMATION
  Report Type: Spontaneous
  Country: FR (occurrence: FR)
  Receive Date: 20160426
  Receipt Date: 20160426
  Transmission Date: 20160815
  Serious: Yes (Other)
  Sender: FDA-Public Use
  Company Number: FR-UCBSA-2016014529

PATIENT
  Age: 83 Year
  Sex: Female

DRUGS (2)
  1. SIFROL [Concomitant]
     Active Substance: PRAMIPEXOLE
     Indication: RESTLESS LEGS SYNDROME
     Dosage: 0.18 MG, 3X/DAY (TID)
  2. NEUPRO [Suspect]
     Active Substance: ROTIGOTINE
     Indication: RESTLESS LEGS SYNDROME
     Dosage: 2 MG, ONCE DAILY (QD)
     Route: 062
     Dates: start: 20160328, end: 20160328

REACTIONS (4)
  - Drug ineffective [Unknown]
  - Off label use [Unknown]
  - Feeling abnormal [Recovered/Resolved]
  - Restless legs syndrome [Recovered/Resolved]

NARRATIVE: CASE EVENT DATE: 20160328
